FAERS Safety Report 6873294-0 (Version None)
Quarter: 2010Q3

REPORT INFORMATION
  Report Type: 
  Country: None (occurrence: None)
  Receive Date: 20100723
  Receipt Date: 20090130
  Transmission Date: 20110219
  Serious: No
  Sender: FDA-Public Use
  Company Number: US-PFIZER INC-2009152741

PATIENT
  Sex: Female
  Weight: 83.9 kg

DRUGS (1)
  1. CHANTIX [Suspect]
     Indication: SMOKING CESSATION THERAPY
     Dosage: 0.5 MG, 1X/DAY
     Dates: start: 20081229, end: 20090101

REACTIONS (4)
  - ABNORMAL DREAMS [None]
  - DISTURBANCE IN ATTENTION [None]
  - HEADACHE [None]
  - NIGHTMARE [None]
